FAERS Safety Report 9308217 (Version 7)
Quarter: 2013Q3

REPORT INFORMATION
  Report Type: Report from Study
  Country: KR (occurrence: KR)
  Receive Date: 20130524
  Receipt Date: 20130816
  Transmission Date: 20140515
  Serious: Yes (Hospitalization)
  Sender: FDA-Public Use
  Company Number: KR-PFIZER INC-2013158360

PATIENT
  Age: 65 Year
  Sex: Female
  Weight: 76 kg

DRUGS (3)
  1. PACLITAXEL [Suspect]
     Indication: BREAST CANCER
     Dosage: 145.6 MG (80 MG/M2), 1/WEEK (ON DAYS 1, 8, 15)
     Route: 042
     Dates: start: 20100726, end: 20130507
  2. TRASTUZUMAB [Suspect]
     Indication: BREAST CANCER
     Dosage: 150 MG (2 MG/KG), 1/WEEK (ON DAYS 1, 8, 15, 22)
     Route: 042
     Dates: start: 20100726, end: 20130507
  3. NORVASC [Concomitant]
     Indication: HYPERTENSION
     Dosage: UNK
     Dates: start: 20100907

REACTIONS (1)
  - Herpes zoster [Recovered/Resolved with Sequelae]
